FAERS Safety Report 19178737 (Version 1)
Quarter: 2021Q2

REPORT INFORMATION
  Report Type: Spontaneous
  Country: US (occurrence: US)
  Receive Date: 20210423
  Receipt Date: 20210423
  Transmission Date: 20210717
  Serious: No
  Sender: FDA-Public Use
  Company Number: None

PATIENT
  Sex: Male

DRUGS (3)
  1. NEUPOGEN [Suspect]
     Active Substance: FILGRASTIM
     Indication: HAEMOGLOBINURIA
     Route: 058
     Dates: start: 20191018
  2. NEUPOGEN [Suspect]
     Active Substance: FILGRASTIM
     Indication: NEUTROPENIA
     Route: 058
     Dates: start: 20191018
  3. NEUPOGEN [Suspect]
     Active Substance: FILGRASTIM
     Indication: APLASTIC ANAEMIA
     Route: 058
     Dates: start: 20191018

REACTIONS (2)
  - Insomnia [None]
  - Arthralgia [None]
